FAERS Safety Report 6765946-8 (Version None)
Quarter: 2010Q2

REPORT INFORMATION
  Report Type: 
  Country: None (occurrence: None)
  Receive Date: 20100611
  Receipt Date: 20100602
  Transmission Date: 20101027
  Serious: Yes (Other)
  Sender: FDA-Public Use
  Company Number: CA-BRISTOL-MYERS SQUIBB COMPANY-15130354

PATIENT
  Age: 50 Year
  Sex: Male

DRUGS (3)
  1. CIPROFLOXACIN [Suspect]
     Route: 048
  2. AMPICILLIN [Suspect]
     Indication: UROSEPSIS
     Route: 042
  3. GENTAMICIN [Suspect]
     Indication: UROSEPSIS
     Route: 042

REACTIONS (1)
  - RENAL VASCULITIS [None]
